FAERS Safety Report 10028528 (Version 2)
Quarter: 2014Q1

REPORT INFORMATION
  Report Type: Spontaneous
  Country: JP (occurrence: None)
  Receive Date: 20140319
  Receipt Date: 20140328
  Transmission Date: 20141002
  Serious: Yes (Hospitalization)
  Sender: FDA-Public Use
  Company Number: ABR_01540_2014

PATIENT
  Age: 77 Year
  Sex: Male
  Weight: 63.7 kg

DRUGS (1)
  1. GLIADEL [Suspect]
     Indication: GLIOBLASTOMA
     Dosage: INTRACEREBRAL
     Dates: start: 20130724

REACTIONS (5)
  - Brain oedema [None]
  - Altered state of consciousness [None]
  - Condition aggravated [None]
  - Somnolence [None]
  - Depressed level of consciousness [None]
